FAERS Safety Report 5519443-8 (Version None)
Quarter: 2007Q4

REPORT INFORMATION
  Report Type: 
  Country: None (occurrence: None)
  Receive Date: 20071116
  Receipt Date: 20071110
  Transmission Date: 20080405
  Serious: Yes (Hospitalization)
  Sender: FDA-Public Use
  Company Number: GB-ROCHE-531028

PATIENT
  Age: 36 Year
  Sex: Male
  Weight: 118.4 kg

DRUGS (2)
  1. ORLISTAT [Suspect]
     Indication: OBESITY
     Route: 048
     Dates: start: 20070607, end: 20071020
  2. UNSPECIFIED DRUG [Concomitant]
     Indication: DEPRESSION
     Dates: start: 20040101

REACTIONS (1)
  - ANGINA PECTORIS [None]
